FAERS Safety Report 10182593 (Version 1)
Quarter: 2014Q2

REPORT INFORMATION
  Report Type: Spontaneous
  Country: US (occurrence: None)
  Receive Date: 20140519
  Receipt Date: 20140519
  Transmission Date: 20141212
  Serious: Yes (Hospitalization)
  Sender: FDA-Public Use
  Company Number: None

PATIENT
  Age: 44 Year
  Sex: Female
  Weight: 82.56 kg

DRUGS (21)
  1. RIBAVIRIN [Suspect]
     Indication: CHRONIC HEPATITIS C
     Route: 048
     Dates: start: 20140408, end: 20140516
  2. BACLOFEN (LIORESAL) [Concomitant]
  3. BUPROPION (WELLBUTRIN XL) [Concomitant]
  4. ERGOCALCIFEROL (ERGOCALCIFEROL) [Concomitant]
  5. GABAPENTIN (NEURONTIN) [Concomitant]
  6. HYDROXYCHLOROQUINE (PLAQUENIL) [Concomitant]
  7. LEVOTHYROXINE (SYNTHROID, LEVOTHROID) [Concomitant]
  8. METHADONE (DOLOPHINE) [Concomitant]
  9. ONDANSETRON (ZOFRAN ODT) [Concomitant]
  10. OXYCODONE (ROXICODONE) [Concomitant]
  11. PANTOPRAZOLE (PROTONIX) [Concomitant]
  12. POLYETHYLENE GLYCOL (MIRALAX) [Concomitant]
  13. RANITIDINE (ZANTAC) [Concomitant]
  14. RIBAVIRIN (RIBASPHERE, REBETOL) [Concomitant]
  15. SENNA-DOCUSATE (SENNA-S) [Concomitant]
  16. SERTRALINE (ZOLOFT) [Concomitant]
  17. SIMETHICONE (MYLICON) [Concomitant]
  18. SODIUM CHLORIDE 0.9 % SO1P 250 ML WITH VANCOMYCIN SOLR [Concomitant]
  19. SOFOSBUVIR (SOVALDI) [Concomitant]
  20. VESICARE [Concomitant]
  21. WITCH HAZEL-GLYCERIN (AER, TUCKS) [Concomitant]

REACTIONS (2)
  - Anaemia [None]
  - Presyncope [None]
